FAERS Safety Report 9658087 (Version 1)
Quarter: 2013Q4

REPORT INFORMATION
  Report Type: Spontaneous
  Country: AU (occurrence: AU)
  Receive Date: 20131030
  Receipt Date: 20131030
  Transmission Date: 20140711
  Serious: Yes (Other)
  Sender: FDA-Public Use
  Company Number: PHHY2013AU119823

PATIENT
  Sex: Female

DRUGS (12)
  1. GLYCERYL TRINITRATE [Suspect]
  2. CLOPIDOGREL [Suspect]
  3. FUROSEMIDE [Suspect]
  4. PARACETAMOL SANDOZ [Suspect]
  5. RAMIPRIL [Suspect]
  6. SALBUTAMOL [Suspect]
  7. ENDONE [Suspect]
  8. BUPRENORPHINE HYDROCHLORIDE [Suspect]
  9. SPIRONOLACTONE [Suspect]
  10. TEMAZEPAM [Suspect]
  11. TERBUTALINE SULFATE [Suspect]
  12. SYMBICORT TU [Suspect]

REACTIONS (2)
  - Angioedema [Unknown]
  - Deafness [Unknown]
